FAERS Safety Report 25563758 (Version 4)
Quarter: 2025Q4

REPORT INFORMATION
  Report Type: Report from Study
  Country: US (occurrence: None)
  Receive Date: 20250716
  Receipt Date: 20251208
  Transmission Date: 20260117
  Serious: Yes (Other)
  Sender: UCB
  Company Number: US-UCBSA-2025003774

PATIENT
  Weight: 108.9 kg

DRUGS (21)
  1. FENFLURAMINE [Suspect]
     Active Substance: FENFLURAMINE
     Indication: Lennox-Gastaut syndrome
     Dosage: 6 MILLILITER, 2X/DAY (BID)
  2. FENFLURAMINE [Suspect]
     Active Substance: FENFLURAMINE
     Dosage: 6 MILLILITER, 2X/DAY (BID)
  3. FENFLURAMINE [Suspect]
     Active Substance: FENFLURAMINE
     Dosage: 0.35 MG/KG/DAY (26MG/DAY)
  4. FENFLURAMINE [Suspect]
     Active Substance: FENFLURAMINE
     Dosage: 6 MILLILITER, 2X/DAY (BID)
  5. FENFLURAMINE [Suspect]
     Active Substance: FENFLURAMINE
     Dosage: 6 MILLILITER, 2X/DAY (BID)
  6. FENFLURAMINE [Suspect]
     Active Substance: FENFLURAMINE
     Dosage: 6 MILLILITER, 2X/DAY (BID)
  7. FENFLURAMINE [Suspect]
     Active Substance: FENFLURAMINE
     Dosage: 6 MILLILITER, 2X/DAY (BID)
  8. Bangal [Concomitant]
     Indication: Seizure
     Dosage: 250 MILLIGRAM (6 PILLS A DAY
  9. CLONAZEPAM [Concomitant]
     Active Substance: CLONAZEPAM
     Indication: Seizure
     Dosage: 0.5 MILLIGRAM (ONE IN THE MORNING AND 1/2 TABLET AT NIGHT)
  10. RISPERDAL [Concomitant]
     Active Substance: RISPERIDONE
     Indication: Anxiety
     Dosage: 1 MILLIGRAM, ONCE DAILY (QD)
  11. RISPERDAL [Concomitant]
     Active Substance: RISPERIDONE
     Indication: Seizure
  12. Levocartinae [Concomitant]
     Indication: Thyroid disorder
     Dosage: 100 MILLIGRAM, ONCE DAILY (QD)
  13. LEVOCARNITINE [Concomitant]
     Active Substance: LEVOCARNITINE
     Indication: Ammonia increased
     Dosage: 330 MILLIGRAM, 2X/2 DAYS
  14. CHOLECALCIFEROL [Concomitant]
     Active Substance: CHOLECALCIFEROL
     Indication: Product used for unknown indication
     Dosage: 50000 MICROGRAM
  15. Lemortigene [Concomitant]
     Indication: Seizure
     Dosage: 150 MILLIGRAM, ONCE DAILY (QD)
  16. ATORVASTATIN [Concomitant]
     Active Substance: ATORVASTATIN
     Indication: Blood cholesterol
     Dosage: 20 MILLIGRAM, ONCE DAILY (QD)
  17. Feno-Fybriate [Concomitant]
     Indication: Blood cholesterol
     Dosage: 145 MILLIGRAM, ONCE DAILY (QD)
  18. FLUTICASONE PROPIONATE [Concomitant]
     Active Substance: FLUTICASONE PROPIONATE
     Indication: Product used for unknown indication
     Dosage: 50 MICROGRAM (2 SPRAYS IN NOSTRILS TWICE A DAY)
  19. Bengal [Concomitant]
     Indication: Product used for unknown indication
     Dosage: 0.03, PERCENTAGE (ONE SPRAY IN EVERY 12 HOURS)
  20. Simply Saline [Concomitant]
     Indication: Cough
     Dosage: UNK
  21. NAYZILAM [Concomitant]
     Active Substance: MIDAZOLAM
     Indication: Seizure cluster
     Dosage: 5 MILLIGRAM

REACTIONS (13)
  - Petit mal epilepsy [Not Recovered/Not Resolved]
  - Seizure [Not Recovered/Not Resolved]
  - Weight decreased [Not Recovered/Not Resolved]
  - Cough [Recovering/Resolving]
  - Abdominal pain upper [Recovered/Resolved]
  - Urinary tract infection [Recovered/Resolved]
  - Hypersensitivity [Not Recovered/Not Resolved]
  - Upper-airway cough syndrome [Not Recovered/Not Resolved]
  - Influenza [Not Recovered/Not Resolved]
  - Nasal congestion [Not Recovered/Not Resolved]
  - Vomiting [Not Recovered/Not Resolved]
  - Nasopharyngitis [Not Recovered/Not Resolved]
  - Oral herpes [Not Recovered/Not Resolved]
